FAERS Safety Report 6879341 (Version 4)
Quarter: 2016Q1

REPORT INFORMATION
  Report Type: Spontaneous
  Country: US (occurrence: US)
  Receive Date: 20090113
  Receipt Date: 20160201
  Transmission Date: 20160526
  Serious: Yes (Hospitalization, Other)
  Sender: FDA-Public Use
  Company Number: US-ROCHE-450541

PATIENT
  Age: 16 Year
  Sex: Male
  Weight: 75.3 kg

DRUGS (4)
  1. ACCUTANE [Suspect]
     Active Substance: ISOTRETINOIN
     Dosage: STRENGTH REPORTED AS 40 MG AND 20 MG.
     Route: 048
     Dates: start: 20010720, end: 20010920
  2. ACCUTANE [Suspect]
     Active Substance: ISOTRETINOIN
     Indication: ACNE CYSTIC
     Route: 048
     Dates: start: 20010517, end: 20010520
  3. ACCUTANE [Suspect]
     Active Substance: ISOTRETINOIN
     Route: 048
     Dates: start: 20021021, end: 20021205
  4. ACCUTANE [Suspect]
     Active Substance: ISOTRETINOIN
     Route: 048
     Dates: start: 20020812, end: 20021020

REACTIONS (8)
  - Crohn^s disease [Recovering/Resolving]
  - Large intestine polyp [Unknown]
  - Proctitis [Unknown]
  - Anxiety [Recovering/Resolving]
  - Inflammatory bowel disease [Unknown]
  - Affective disorder [Unknown]
  - Obsessive-compulsive disorder [Unknown]
  - Colitis ulcerative [Not Recovered/Not Resolved]

NARRATIVE: CASE EVENT DATE: 20021024
